FAERS Safety Report 11717727 (Version 2)
Quarter: 2018Q1

REPORT INFORMATION
  Report Type: Spontaneous
  Country: US (occurrence: US)
  Receive Date: 20151110
  Receipt Date: 20180111
  Transmission Date: 20180508
  Serious: No
  Sender: FDA-Public Use
  Company Number: US-009507513-1511USA004214

PATIENT
  Sex: Male

DRUGS (2)
  1. NITRO-DUR [Suspect]
     Active Substance: NITROGLYCERIN
     Indication: CORONARY ARTERY DISEASE
     Dosage: DOSE/FREQUENCY: ONE PATCH EVERY 12 HOURS
     Route: 062
     Dates: start: 2007
  2. TENORMIN [Suspect]
     Active Substance: ATENOLOL

REACTIONS (2)
  - Headache [Recovered/Resolved]
  - Medication error [Unknown]
